FAERS Safety Report 4667291-3 (Version None)
Quarter: 2005Q2

REPORT INFORMATION
  Report Type: 
  Country: None (occurrence: None)
  Receive Date: 20050502
  Receipt Date: 20050318
  Transmission Date: 20051028
  Serious: No
  Sender: FDA-Public Use
  Company Number: 200512206US

PATIENT
  Age: 31 Year
  Sex: Female

DRUGS (7)
  1. KETEK [Suspect]
     Indication: INFLUENZA
     Dosage: 800 MG BID PO
     Route: 048
     Dates: start: 20050313, end: 18200308
  2. CODEINE PHOSPHATE [Concomitant]
  3. CAFFEINE [Concomitant]
  4. PARACETAMOL [Concomitant]
  5. PIPERYLONE [Concomitant]
  6. MALEATE (THERAFLU) [Concomitant]
  7. ORAL CONTRACEPITVE NOS [Concomitant]

REACTIONS (12)
  - ASTHENIA [None]
  - COLOUR BLINDNESS [None]
  - DIARRHOEA [None]
  - DIPLOPIA [None]
  - DIZZINESS [None]
  - DYSGEUSIA [None]
  - DYSURIA [None]
  - NAUSEA [None]
  - OVERDOSE [None]
  - VISUAL ACUITY REDUCED [None]
  - VISUAL DISTURBANCE [None]
  - VOMITING [None]
